FAERS Safety Report 14818651 (Version 1)
Quarter: 2018Q2

REPORT INFORMATION
  Report Type: Spontaneous
  Country: US (occurrence: US)
  Receive Date: 20180427
  Receipt Date: 20180427
  Transmission Date: 20180711
  Serious: No
  Sender: FDA-Public Use
  Company Number: US-PFIZER INC-2017310858

PATIENT
  Sex: Female

DRUGS (3)
  1. LYRICA [Suspect]
     Active Substance: PREGABALIN
     Indication: GENITO-PELVIC PAIN/PENETRATION DISORDER
  2. LYRICA [Suspect]
     Active Substance: PREGABALIN
     Indication: VULVOVAGINAL PAIN
  3. LYRICA [Suspect]
     Active Substance: PREGABALIN
     Indication: MUSCULOSKELETAL DISORDER
     Dosage: UNK

REACTIONS (2)
  - Product use in unapproved indication [Unknown]
  - Cholelithiasis [Unknown]
